FAERS Safety Report 23617309 (Version 1)
Quarter: 2024Q1

REPORT INFORMATION
  Report Type: Spontaneous
  Country: FR (occurrence: FR)
  Receive Date: 20240311
  Receipt Date: 20240311
  Transmission Date: 20240409
  Serious: Yes (Hospitalization)
  Sender: FDA-Public Use
  Company Number: None

PATIENT
  Age: 73 Year
  Sex: Male
  Weight: 100 kg

DRUGS (3)
  1. FLUOROURACIL [Suspect]
     Active Substance: FLUOROURACIL
     Indication: Colon cancer metastatic
     Dosage: TIME INTERVAL: CYCLICAL: FLUOROURACILE, 10 CURES RECEIVED?800MG BOLUS + 4800MG DIFFUSER
     Route: 042
     Dates: start: 20230719
  2. ERBITUX [Suspect]
     Active Substance: CETUXIMAB
     Indication: Colon cancer metastatic
     Dosage: TIME INTERVAL: CYCLICAL: 10 CURES RECEIVED
     Route: 042
     Dates: start: 20230719
  3. IRINOTECAN [Suspect]
     Active Substance: IRINOTECAN
     Indication: Colon cancer metastatic
     Dosage: TIME INTERVAL: CYCLICAL: 10 CURES RECEIVED
     Route: 042
     Dates: start: 20230719

REACTIONS (1)
  - Pulmonary embolism [Recovering/Resolving]

NARRATIVE: CASE EVENT DATE: 20230724
